FAERS Safety Report 9746424 (Version 2)
Quarter: 2014Q2

REPORT INFORMATION
  Report Type: Spontaneous
  Country: DE (occurrence: DE)
  Receive Date: 20131211
  Receipt Date: 20140401
  Transmission Date: 20141212
  Serious: Yes (Death)
  Sender: FDA-Public Use
  Company Number: DE-VIIV HEALTHCARE LIMITED-D0082162A

PATIENT
  Sex: Female

DRUGS (1)
  1. TELZIR [Suspect]
     Indication: HIV INFECTION
     Route: 048

REACTIONS (1)
  - Death [Fatal]
